FAERS Safety Report 11083506 (Version 1)
Quarter: 2015Q2

REPORT INFORMATION
  Report Type: Spontaneous
  Country: US (occurrence: US)
  Receive Date: 20150501
  Receipt Date: 20150501
  Transmission Date: 20150821
  Serious: Yes (Hospitalization)
  Sender: FDA-Public Use
  Company Number: PHHY2015US048862

PATIENT
  Age: 42 Year
  Sex: Female

DRUGS (1)
  1. SUMATRIPTAN HEXAL [Suspect]
     Active Substance: SUMATRIPTAN
     Indication: MIGRAINE
     Dosage: 6 MG, UNK
     Route: 058

REACTIONS (9)
  - Atrial fibrillation [Unknown]
  - Drooling [Unknown]
  - Lethargy [Unknown]
  - Supraventricular tachycardia [Unknown]
  - Torticollis [Unknown]
  - Muscle rigidity [Unknown]
  - Ventricular fibrillation [Unknown]
  - Torsade de pointes [Unknown]
  - Dysarthria [Unknown]
